FAERS Safety Report 16939743 (Version 1)
Quarter: 2019Q4

REPORT INFORMATION
  Report Type: Spontaneous
  Country: SE (occurrence: SE)
  Receive Date: 20191021
  Receipt Date: 20191021
  Transmission Date: 20200122
  Serious: Yes (Other)
  Sender: FDA-Public Use
  Company Number: SE-TEVA-2019-SE-1125067

PATIENT
  Age: 31 Year
  Sex: Male

DRUGS (1)
  1. TRAMADOL ACTAVIS [Suspect]
     Active Substance: TRAMADOL
     Route: 065
     Dates: end: 201603

REACTIONS (1)
  - Epilepsy [Unknown]

NARRATIVE: CASE EVENT DATE: 201603
